FAERS Safety Report 8215978-8 (Version None)
Quarter: 2012Q1

REPORT INFORMATION
  Report Type: 
  Country: None (occurrence: None)
  Receive Date: 20120316
  Receipt Date: 20120313
  Transmission Date: 20120608
  Serious: No
  Sender: FDA-Public Use
  Company Number: US-PFIZER INC-2012066577

PATIENT
  Sex: Female
  Weight: 49.887 kg

DRUGS (4)
  1. PRISTIQ [Suspect]
     Indication: ANXIETY
     Dosage: 50 MG, 1X/DAY
     Route: 048
     Dates: start: 20120308
  2. EFFEXOR XR [Suspect]
     Indication: DEPRESSION
  3. EFFEXOR XR [Suspect]
     Indication: ANXIETY
     Dosage: 150 MG, 1X/DAY
     Route: 048
     Dates: start: 20000101, end: 20120307
  4. PRISTIQ [Suspect]
     Indication: DEPRESSION

REACTIONS (5)
  - OEDEMA PERIPHERAL [None]
  - ANXIETY [None]
  - TACHYCARDIA [None]
  - WEIGHT INCREASED [None]
  - PALPITATIONS [None]
